FAERS Safety Report 7301112-5 (Version None)
Quarter: 2011Q1

REPORT INFORMATION
  Report Type: 
  Country: None (occurrence: None)
  Receive Date: 20110218
  Receipt Date: 20110207
  Transmission Date: 20110831
  Serious: Yes (Other)
  Sender: FDA-Public Use
  Company Number: US-PERRIGO-11US000956

PATIENT
  Sex: Female
  Weight: 11.338 kg

DRUGS (1)
  1. LICE SHMPO LIQ 866 [Suspect]
     Indication: LICE INFESTATION
     Dosage: 1 APPLICATION, SINGLE
     Route: 061
     Dates: start: 20110202, end: 20110202

REACTIONS (11)
  - BLINDNESS TRANSIENT [None]
  - PUPILLARY LIGHT REFLEX TESTS ABNORMAL [None]
  - DECREASED ACTIVITY [None]
  - OFF LABEL USE [None]
  - EYE IRRITATION [None]
  - VISION BLURRED [None]
  - ACCIDENTAL EXPOSURE [None]
  - CORNEAL ABRASION [None]
  - PHOTOPHOBIA [None]
  - DECREASED APPETITE [None]
  - OCULAR HYPERAEMIA [None]
